FAERS Safety Report 9082561 (Version 1)
Quarter: 2013Q1

REPORT INFORMATION
  Report Type: Report from Study
  Country: JP (occurrence: JP)
  Receive Date: 20130131
  Receipt Date: 20130131
  Transmission Date: 20140127
  Serious: Yes (Other)
  Sender: FDA-Public Use
  Company Number: JP-009507513-2012SP032659

PATIENT
  Age: 68 Year
  Sex: Male
  Weight: 60 kg

DRUGS (6)
  1. PEGINTRON [Suspect]
     Indication: CHRONIC HEPATITIS C
     Dosage: 1.33 MICROGRAM PER KILOGRAM, QW
     Route: 058
     Dates: start: 20120418, end: 20120418
  2. REBETOL [Suspect]
     Indication: CHRONIC HEPATITIS C
     Dosage: 600 MG, QD
     Route: 048
     Dates: start: 20120418, end: 20120423
  3. TELAVIC [Suspect]
     Indication: CHRONIC HEPATITIS C
     Dosage: 2250 MG, QD
     Route: 048
     Dates: start: 20120418, end: 20120423
  4. FASTIC [Concomitant]
     Indication: DIABETES MELLITUS
     Dosage: FORMULATION: POR, 90 MG, QD
     Route: 048
  5. LOCHOL (FLUVASTATIN SODIUM) [Concomitant]
     Indication: HYPERCHOLESTEROLAEMIA
     Dosage: FORMULATION: POR, 20 MG, QD
     Route: 048
  6. ALFAROL [Concomitant]
     Indication: OSTEOPOROSIS
     Dosage: FORMULATION: POR,0.75 MG, QD
     Route: 048

REACTIONS (1)
  - Rash [Recovered/Resolved]
